FAERS Safety Report 21444895 (Version 1)
Quarter: 2022Q4

REPORT INFORMATION
  Report Type: Report from Study
  Country: US (occurrence: US)
  Receive Date: 20221012
  Receipt Date: 20221012
  Transmission Date: 20230113
  Serious: No
  Sender: FDA-Public Use
  Company Number: US-NOVARTISTESTPH-NVSC2022US229055

PATIENT
  Age: 57 Year

DRUGS (1)
  1. ENTRESTO [Suspect]
     Active Substance: SACUBITRIL\VALSARTAN
     Indication: Cardiac failure congestive
     Dosage: 1 DOSAGE FORM, BID, (49/51 MG)
     Route: 048
     Dates: start: 2022

REACTIONS (2)
  - Nasal congestion [Unknown]
  - Throat clearing [Unknown]

NARRATIVE: CASE EVENT DATE: 20221009
